FAERS Safety Report 16607072 (Version 2)
Quarter: 2019Q3

REPORT INFORMATION
  Report Type: Spontaneous
  Country: GB (occurrence: GB)
  Receive Date: 20190722
  Receipt Date: 20190813
  Transmission Date: 20191004
  Serious: Yes (Life-Threatening, Hospitalization, Other)
  Sender: FDA-Public Use
  Company Number: GB-CONCORDIA PHARMACEUTICALS INC.-E2B_00020369

PATIENT
  Age: 43 Year
  Sex: Male

DRUGS (4)
  1. DAPAGLIFLOZIN. [Suspect]
     Active Substance: DAPAGLIFLOZIN
     Indication: TYPE 2 DIABETES MELLITUS
  2. ALOGLIPTIN. [Concomitant]
     Active Substance: ALOGLIPTIN
     Indication: TYPE 2 DIABETES MELLITUS
     Route: 048
  3. PIOGLITAZONE. [Concomitant]
     Active Substance: PIOGLITAZONE
     Indication: TYPE 2 DIABETES MELLITUS
     Route: 048
  4. PREDNISOLONE. [Suspect]
     Active Substance: PREDNISOLONE
     Indication: ECZEMA

REACTIONS (1)
  - Diabetic ketoacidosis [Recovering/Resolving]
